FAERS Safety Report 16406516 (Version 2)
Quarter: 2025Q3

REPORT INFORMATION
  Report Type: Spontaneous
  Country: EU (occurrence: EU)
  Receive Date: 20190607
  Receipt Date: 20250806
  Transmission Date: 20251020
  Serious: Yes (Hospitalization)
  Sender: AUROBINDO
  Company Number: EU-002147023-PHHY2018FR171370

PATIENT
  Age: 40 Year
  Sex: Male

DRUGS (6)
  1. PAROXETINE [Suspect]
     Active Substance: PAROXETINE
     Indication: Post-traumatic stress disorder
     Route: 065
  2. PAROXETINE [Suspect]
     Active Substance: PAROXETINE
     Route: 065
  3. QUETIAPINE [Suspect]
     Active Substance: QUETIAPINE
     Indication: Post-traumatic stress disorder
     Route: 065
  4. QUETIAPINE [Suspect]
     Active Substance: QUETIAPINE
     Route: 065
  5. PRAZOSIN [Suspect]
     Active Substance: PRAZOSIN
     Indication: Post-traumatic stress disorder
     Route: 065
  6. PERICIAZINE [Suspect]
     Active Substance: PERICIAZINE
     Indication: Post-traumatic stress disorder
     Route: 065

REACTIONS (2)
  - Drug resistance [Unknown]
  - Product use in unapproved indication [Unknown]
